FAERS Safety Report 22083194 (Version 1)
Quarter: 2023Q1

REPORT INFORMATION
  Report Type: Spontaneous
  Country: US (occurrence: None)
  Receive Date: 20230309
  Receipt Date: 20230309
  Transmission Date: 20230417
  Serious: No
  Sender: FDA-Public Use
  Company Number: None

PATIENT
  Age: 74 Year
  Sex: Male
  Weight: 97.48 kg

DRUGS (34)
  1. ABIRATERONE ACETATE [Suspect]
     Active Substance: ABIRATERONE ACETATE
     Indication: Prostate cancer
     Dosage: FREQUENCY : DAILY;?
     Route: 048
     Dates: start: 20230203
  2. ADVIL LIQUI-GELS [Concomitant]
     Active Substance: IBUPROFEN
  3. ALLERGY RELIEF [Concomitant]
  4. ASPIRIN [Concomitant]
     Active Substance: ASPIRIN
  5. CALCIUM [Concomitant]
     Active Substance: CALCIUM
  6. CLOTRIMAZOLE AND BETAMETHASONE DIPROPIONATE [Concomitant]
     Active Substance: BETAMETHASONE\BETAMETHASONE DIPROPIONATE\CLOTRIMAZOLE
  7. COENZYME Q10 [Concomitant]
     Active Substance: DIETARY SUPPLEMENT\UBIDECARENONE
  8. Creatine Monohydrate Powder [Concomitant]
  9. Cyanocobalamin B-12 [Concomitant]
  10. DOXAZOSIN MESYLATE [Concomitant]
     Active Substance: DOXAZOSIN MESYLATE
  11. EZETIMIBE [Concomitant]
     Active Substance: EZETIMIBE
  12. FENOFIBRATE [Concomitant]
     Active Substance: FENOFIBRATE
  13. FENSOLVI [Concomitant]
     Active Substance: LEUPROLIDE ACETATE
  14. FLONASE ALLERGY RELIEF [Concomitant]
     Active Substance: FLUTICASONE PROPIONATE
  15. FOLIC ACID [Concomitant]
     Active Substance: FOLIC ACID
  16. CALCIUM\VITAMIN D [Concomitant]
     Active Substance: CALCIUM\VITAMIN D
  17. Leiprolide [Concomitant]
  18. LEVOCARNITINE [Concomitant]
     Active Substance: LEVOCARNITINE
  19. LUPRON [Concomitant]
     Active Substance: LEUPROLIDE ACETATE
  20. METOPROLOL SUCCINATE [Concomitant]
     Active Substance: METOPROLOL SUCCINATE
  21. METOPROLOL TARTRATE [Concomitant]
     Active Substance: METOPROLOL TARTRATE
  22. MILK OF MAGNESIA [Concomitant]
     Active Substance: MAGNESIUM HYDROXIDE
  23. MIRALAX [Concomitant]
     Active Substance: POLYETHYLENE GLYCOL 3350
  24. Multi for Him [Concomitant]
  25. Nimodipin [Concomitant]
  26. ONDANSETRON [Concomitant]
     Active Substance: ONDANSETRON
  27. PEPTO-BISMOL MAX STRENGTH [Concomitant]
     Active Substance: BISMUTH SUBSALICYLATE
  28. PFIZER-BIONTECH COVID-19 VACCINE [Concomitant]
     Active Substance: TOZINAMERAN
  29. PREDNISONE [Concomitant]
     Active Substance: PREDNISONE
  30. SILDENAFIL CITRATE [Concomitant]
     Active Substance: SILDENAFIL CITRATE
  31. Systane Ophthalmic Solution [Concomitant]
  32. VALSARTAN [Concomitant]
     Active Substance: VALSARTAN
  33. VITAMIN D3 [Concomitant]
     Active Substance: CHOLECALCIFEROL
  34. VITAMIN B [Concomitant]
     Active Substance: VITAMIN B

REACTIONS (1)
  - Prostatic specific antigen increased [None]
